FAERS Safety Report 24125222 (Version 1)
Quarter: 2024Q3

REPORT INFORMATION
  Report Type: Spontaneous
  Country: US (occurrence: US)
  Receive Date: 20240723
  Receipt Date: 20240723
  Transmission Date: 20241016
  Serious: No
  Sender: STEMLINE THERAPEUTICS
  Company Number: US-Stemline Therapeutics, Inc.-2024ST002761

PATIENT
  Age: 70 Year
  Sex: Female

DRUGS (1)
  1. ORSERDU [Suspect]
     Active Substance: ELACESTRANT
     Indication: Product used for unknown indication
     Dosage: 86 MG THREE TABLETS DAILY
     Route: 048
     Dates: start: 20240424

REACTIONS (4)
  - Affect lability [Unknown]
  - Abdominal pain [Recovering/Resolving]
  - Diarrhoea [Unknown]
  - Vomiting [Unknown]
